FAERS Safety Report 24910322 (Version 2)
Quarter: 2025Q1

REPORT INFORMATION
  Report Type: Report from Study
  Country: PL (occurrence: PL)
  Receive Date: 20250131
  Receipt Date: 20250218
  Transmission Date: 20250408
  Serious: Yes (Other)
  Sender: AMGEN
  Company Number: PL-AMGEN-POLNI2025010677

PATIENT
  Sex: Female

DRUGS (2)
  1. INEBILIZUMAB [Suspect]
     Active Substance: INEBILIZUMAB
     Indication: Product used for unknown indication
     Dosage: UNK, Q6MO
     Route: 040
  2. INEBILIZUMAB [Suspect]
     Active Substance: INEBILIZUMAB
     Dosage: UNK, Q6MO
     Route: 040
     Dates: start: 20241002

REACTIONS (1)
  - Post procedural complication [Unknown]
